FAERS Safety Report 7186874-2 (Version None)
Quarter: 2010Q4

REPORT INFORMATION
  Report Type: 
  Country: None (occurrence: None)
  Receive Date: 20101222
  Receipt Date: 20101216
  Transmission Date: 20110411
  Serious: Yes (Other)
  Sender: FDA-Public Use
  Company Number: B0690519A

PATIENT
  Sex: Male

DRUGS (4)
  1. DIGOXIN [Suspect]
  2. PROPRANOLOL [Suspect]
     Dosage: 40MG FOUR TIMES PER DAY
  3. PROSTAGLANDIN [Suspect]
     Route: 065
  4. OXYTOCIN [Suspect]

REACTIONS (1)
  - DRUG EXPOSURE DURING PREGNANCY [None]
